FAERS Safety Report 6220051-4 (Version None)
Quarter: 2009Q2

REPORT INFORMATION
  Report Type: 
  Country: None (occurrence: None)
  Receive Date: 20090609
  Receipt Date: 20090528
  Transmission Date: 20091009
  Serious: Yes (Hospitalization, Other)
  Sender: FDA-Public Use
  Company Number: PHEH2009US05403

PATIENT
  Sex: Female

DRUGS (2)
  1. CLOZARIL [Suspect]
     Dosage: 100MG AM AND 450MG HS
     Route: 048
     Dates: end: 20090526
  2. ABILIFY [Suspect]

REACTIONS (1)
  - PSYCHOTIC BEHAVIOUR [None]
